FAERS Safety Report 5665149-4 (Version None)
Quarter: 2008Q1

REPORT INFORMATION
  Report Type: 
  Country: None (occurrence: None)
  Receive Date: 20080314
  Receipt Date: 20080307
  Transmission Date: 20080703
  Serious: Yes (Hospitalization, Disabling)
  Sender: FDA-Public Use
  Company Number: US-MERCK-0509USA04013

PATIENT
  Age: 56 Year
  Sex: Female
  Weight: 75 kg

DRUGS (1)
  1. FOSAMAX [Suspect]
     Indication: OSTEOPOROSIS
     Route: 048
     Dates: start: 20020401, end: 20030301

REACTIONS (66)
  - ABDOMINAL PAIN [None]
  - ANXIETY [None]
  - ARRHYTHMIA SUPRAVENTRICULAR [None]
  - ATRIAL FIBRILLATION [None]
  - ATRIAL TACHYCARDIA [None]
  - BACK PAIN [None]
  - BENIGN NEOPLASM OF SPINAL CORD [None]
  - BIPOLAR DISORDER [None]
  - BONE DISORDER [None]
  - BREAST CYST [None]
  - BREAST NEOPLASM [None]
  - BURSITIS [None]
  - CARDIAC DISORDER [None]
  - CONJUNCTIVITIS ALLERGIC [None]
  - CORONARY ARTERY DISEASE [None]
  - DEAFNESS NEUROSENSORY [None]
  - DERMATITIS CONTACT [None]
  - DIZZINESS [None]
  - DRUG HYPERSENSITIVITY [None]
  - DRUG INTOLERANCE [None]
  - DRY EYE [None]
  - DYSPNOEA [None]
  - EUSTACHIAN TUBE DYSFUNCTION [None]
  - FATIGUE [None]
  - GASTROINTESTINAL NEOPLASM [None]
  - GASTROOESOPHAGEAL REFLUX DISEASE [None]
  - HEAD INJURY [None]
  - HEADACHE [None]
  - HEPATIC ENZYME INCREASED [None]
  - HYPERLIPIDAEMIA [None]
  - HYPOAESTHESIA [None]
  - HYPOGAMMAGLOBULINAEMIA [None]
  - INSOMNIA [None]
  - INTESTINAL MASS [None]
  - LATEX ALLERGY [None]
  - MYALGIA [None]
  - NAUSEA [None]
  - NECK INJURY [None]
  - NERVE INJURY [None]
  - NOCTURIA [None]
  - OBSESSIVE-COMPULSIVE DISORDER [None]
  - OESOPHAGITIS [None]
  - ORAL CANDIDIASIS [None]
  - ORAL DISORDER [None]
  - OSTEOMYELITIS [None]
  - OSTEONECROSIS [None]
  - PEPTIC ULCER [None]
  - PULMONARY VASCULAR DISORDER [None]
  - PYREXIA [None]
  - RASH [None]
  - RECTAL SPASM [None]
  - RED BLOOD CELL SEDIMENTATION RATE INCREASED [None]
  - ROAD TRAFFIC ACCIDENT [None]
  - SELECTIVE IGG SUBCLASS DEFICIENCY [None]
  - SINUS ARRHYTHMIA [None]
  - SINUSITIS [None]
  - SPINAL COLUMN STENOSIS [None]
  - STRESS [None]
  - STRESS URINARY INCONTINENCE [None]
  - SUBMANDIBULAR MASS [None]
  - SUPRAVENTRICULAR TACHYCARDIA [None]
  - SYNOVIAL CYST [None]
  - TENDON DISORDER [None]
  - VAGINAL INFECTION [None]
  - VENTRICULAR TACHYCARDIA [None]
  - VERTIGO [None]
